FAERS Safety Report 4986945-2 (Version None)
Quarter: 2006Q2

REPORT INFORMATION
  Report Type: 
  Country: None (occurrence: None)
  Receive Date: 20060501
  Receipt Date: 20060424
  Transmission Date: 20061013
  Serious: Yes (Hospitalization, Other)
  Sender: FDA-Public Use
  Company Number: PHEH2006US05370

PATIENT
  Sex: Female

DRUGS (7)
  1. SEROQUEL [Concomitant]
  2. LITHIUM CARBONATE [Concomitant]
  3. VALPROIC ACID [Concomitant]
  4. ALPRAZOLAM [Concomitant]
  5. TRIFLUPROMAZINE [Concomitant]
  6. CLOZAPINE [Suspect]
     Indication: SCHIZOPHRENIA
     Dates: start: 19991002
  7. CLOZARIL [Suspect]
     Indication: SCHIZOPHRENIA
     Dosage: 450 MG, QD
     Route: 048
     Dates: start: 19910101, end: 19991001

REACTIONS (3)
  - KIDNEY INFECTION [None]
  - NEPHRECTOMY [None]
  - SCHIZOPHRENIA [None]
